FAERS Safety Report 4920587-X (Version None)
Quarter: 2006Q1

REPORT INFORMATION
  Report Type: 
  Country: None (occurrence: None)
  Receive Date: 20060217
  Receipt Date: 20060131
  Transmission Date: 20060701
  Serious: Yes (Other)
  Sender: FDA-Public Use
  Company Number: 0601-065

PATIENT
  Sex: Female

DRUGS (1)
  1. DUONEB [Suspect]
     Dosage: NEBULIZER

REACTIONS (1)
  - CHEST PAIN [None]
